FAERS Safety Report 5708606-4 (Version None)
Quarter: 2008Q2

REPORT INFORMATION
  Report Type: 
  Country: None (occurrence: None)
  Receive Date: 20080417
  Receipt Date: 20080408
  Transmission Date: 20081010
  Serious: Yes (Disabling)
  Sender: FDA-Public Use
  Company Number: AUWYE183817AUG07

PATIENT
  Age: 25 Year
  Sex: Female

DRUGS (7)
  1. EFFEXOR [Suspect]
     Indication: POSTPARTUM DEPRESSION
     Route: 048
     Dates: start: 20030101, end: 20070101
  2. EFFEXOR [Suspect]
     Route: 048
     Dates: start: 20070101, end: 20070101
  3. EFFEXOR [Suspect]
     Route: 048
     Dates: start: 20070101
  4. EFFEXOR [Suspect]
     Route: 048
     Dates: end: 20080101
  5. EFFEXOR [Suspect]
     Route: 048
     Dates: start: 20080101, end: 20080101
  6. EFFEXOR [Suspect]
     Route: 048
     Dates: start: 20080101, end: 20080401
  7. EFFEXOR [Suspect]
     Route: 048
     Dates: start: 20080401

REACTIONS (8)
  - ACTIVITIES OF DAILY LIVING IMPAIRED [None]
  - CONDITION AGGRAVATED [None]
  - DEPRESSION [None]
  - DRUG EFFECT DECREASED [None]
  - DRUG EXPOSURE DURING PREGNANCY [None]
  - DRUG WITHDRAWAL SYNDROME [None]
  - MENTAL DISORDER [None]
  - TEARFULNESS [None]
